FAERS Safety Report 24809932 (Version 1)
Quarter: 2025Q1

REPORT INFORMATION
  Report Type: Spontaneous
  Country: US (occurrence: None)
  Receive Date: 20250104
  Receipt Date: 20250104
  Transmission Date: 20250408
  Serious: Yes (Hospitalization)
  Sender: FDA-CTU
  Company Number: None

PATIENT
  Age: 32 Year
  Sex: Female
  Weight: 59 kg

DRUGS (5)
  1. FLUOROURACIL [Suspect]
     Active Substance: FLUOROURACIL
     Dates: end: 20241227
  2. CAMPTOSAR [Suspect]
     Active Substance: IRINOTECAN HYDROCHLORIDE
     Dates: end: 20241227
  3. NIVOLUMAB [Suspect]
     Active Substance: NIVOLUMAB
     Dates: end: 20241227
  4. ELOXATIN [Suspect]
     Active Substance: OXALIPLATIN
     Dates: end: 20241227
  5. LEUCOVORIN [Suspect]
     Active Substance: LEUCOVORIN\LEUCOVORIN CALCIUM

REACTIONS (8)
  - Pyrexia [None]
  - Hypotension [None]
  - Small intestinal obstruction [None]
  - Hydronephrosis [None]
  - Sepsis [None]
  - Blood creatinine increased [None]
  - Anaemia [None]
  - Platelet count decreased [None]

NARRATIVE: CASE EVENT DATE: 20241229
